FAERS Safety Report 9523612 (Version 1)
Quarter: 2013Q3

REPORT INFORMATION
  Report Type: Spontaneous
  Country: SE (occurrence: SE)
  Receive Date: 20130913
  Receipt Date: 20130913
  Transmission Date: 20140515
  Serious: Yes (Other)
  Sender: FDA-Public Use
  Company Number: SE-B.I. PHARMACEUTICALS,INC./RIDGEFIELD-2013-SW-00445SW

PATIENT
  Age: 86 Year
  Sex: Male

DRUGS (7)
  1. PRADAXA [Suspect]
     Indication: ATRIAL FIBRILLATION
     Dosage: 220 MG
     Route: 048
     Dates: start: 20130722, end: 20130802
  2. LYRICA [Concomitant]
  3. ATACAND [Concomitant]
  4. ESOMEPRAZOL UNSPECIFIED [Concomitant]
  5. SELOKENZOC [Concomitant]
  6. IMDUR [Concomitant]
  7. PREDNISOLON [Concomitant]

REACTIONS (1)
  - Hallucination [Recovered/Resolved]
